FAERS Safety Report 11246232 (Version 1)
Quarter: 2015Q3

REPORT INFORMATION
  Report Type: Spontaneous
  Country: US (occurrence: US)
  Receive Date: 20150708
  Receipt Date: 20150708
  Transmission Date: 20151125
  Serious: No
  Sender: FDA-Public Use
  Company Number: US-AMGEN-USASP2015065844

PATIENT
  Age: 12 Year
  Sex: Female

DRUGS (1)
  1. ENBREL [Suspect]
     Active Substance: ETANERCEPT
     Indication: VASCULITIS
     Dosage: 50 MG, QWK
     Route: 065
     Dates: start: 20141201, end: 201506

REACTIONS (3)
  - Stomatitis [Not Recovered/Not Resolved]
  - Off label use [Recovered/Resolved]
  - Therapeutic response decreased [Not Recovered/Not Resolved]

NARRATIVE: CASE EVENT DATE: 20141201
